FAERS Safety Report 7329044-7 (Version None)
Quarter: 2011Q1

REPORT INFORMATION
  Report Type: 
  Country: None (occurrence: None)
  Receive Date: 20110303
  Receipt Date: 20110124
  Transmission Date: 20110831
  Serious: Yes (Hospitalization)
  Sender: FDA-Public Use
  Company Number: US-US-EMD SERONO, INC.-233511J09USA

PATIENT
  Sex: Female
  Weight: 61 kg

DRUGS (4)
  1. UNSPECIFIED BLOOD PRESSURE MEDICATION [Concomitant]
     Indication: HYPERTENSION
     Route: 065
  2. REBIF [Suspect]
     Indication: MULTIPLE SCLEROSIS
     Route: 058
     Dates: start: 20090806, end: 20091021
  3. MULSCLE RELAXER [Concomitant]
     Indication: MUSCLE SPASMS
     Route: 065
  4. REBIF [Suspect]
     Route: 058
     Dates: start: 20091120

REACTIONS (3)
  - COLON CANCER [None]
  - METASTASES TO LIVER [None]
  - PAIN IN EXTREMITY [None]
